FAERS Safety Report 4474144-2 (Version None)
Quarter: 2004Q4

REPORT INFORMATION
  Report Type: 
  Country: None (occurrence: None)
  Receive Date: 20041014
  Receipt Date: 20041006
  Transmission Date: 20050328
  Serious: Yes (Other)
  Sender: FDA-Public Use
  Company Number: 200413755FR

PATIENT
  Age: 34 Year
  Sex: Female

DRUGS (5)
  1. FLAGYL [Suspect]
  2. LYSANXIA [Concomitant]
  3. AVLOCARDYL [Concomitant]
  4. ECONAZOLE NITRATE [Concomitant]
  5. COLPOTROPHINE [Concomitant]

REACTIONS (1)
  - MYDRIASIS [None]
